FAERS Safety Report 5514467-9 (Version None)
Quarter: 2007Q4

REPORT INFORMATION
  Report Type: 
  Country: None (occurrence: None)
  Receive Date: 20071113
  Receipt Date: 20070601
  Transmission Date: 20080405
  Serious: No
  Sender: FDA-Public Use
  Company Number: A0653811A

PATIENT
  Age: 70 Year
  Sex: Male

DRUGS (3)
  1. CARVEDILOL [Suspect]
     Dosage: 25MG TWICE PER DAY
     Route: 048
     Dates: start: 20050101
  2. LASIX [Suspect]
     Indication: FLUID RETENTION
     Dosage: 40MG PER DAY
     Route: 048
     Dates: start: 20070101
  3. WARFARIN SODIUM [Concomitant]

REACTIONS (8)
  - ANXIETY [None]
  - DEHYDRATION [None]
  - DYSPNOEA [None]
  - HEART RATE ABNORMAL [None]
  - HYPOTENSION [None]
  - INSOMNIA [None]
  - RENAL IMPAIRMENT [None]
  - TREMOR [None]
